FAERS Safety Report 11547565 (Version 1)
Quarter: 2015Q3

REPORT INFORMATION
  Report Type: Spontaneous
  Country: FR (occurrence: FR)
  Receive Date: 20150924
  Receipt Date: 20150924
  Transmission Date: 20151125
  Serious: Yes (Hospitalization)
  Sender: FDA-Public Use
  Company Number: CHPA2015FR010938

PATIENT
  Age: 2 Year
  Sex: Male

DRUGS (2)
  1. BEPANTHEN POMMADE [Suspect]
     Active Substance: DEXPANTHENOL
     Indication: ERYTHEMA
     Dosage: UNK
     Route: 003
     Dates: start: 20150206, end: 20150206
  2. PURSENNIDE [Suspect]
     Active Substance: SENNOSIDES A AND B
     Indication: PRODUCT USED FOR UNKNOWN INDICATION
     Dosage: 3 DF, UNK
     Route: 048
     Dates: start: 20150205, end: 20150205

REACTIONS (2)
  - Burns second degree [Recovered/Resolved]
  - Dermatitis bullous [Recovered/Resolved]

NARRATIVE: CASE EVENT DATE: 20150206
